FAERS Safety Report 18140790 (Version 2)
Quarter: 2020Q3

REPORT INFORMATION
  Report Type: Spontaneous
  Country: US (occurrence: US)
  Receive Date: 20200812
  Receipt Date: 20200817
  Transmission Date: 20201103
  Serious: No
  Sender: FDA-Public Use
  Company Number: US-PFIZER INC-2020309929

PATIENT
  Sex: Male

DRUGS (1)
  1. SIROLIMUS. [Suspect]
     Active Substance: SIROLIMUS
     Dosage: UNK, DAILY (TAKES THE PRODUCT AT 9 O^CLOCK IN THE MORNING)
     Dates: start: 202007

REACTIONS (1)
  - Diarrhoea [Unknown]
